FAERS Safety Report 7801586-7 (Version None)
Quarter: 2011Q4

REPORT INFORMATION
  Report Type: 
  Country: None (occurrence: None)
  Receive Date: 20111006
  Receipt Date: 20111006
  Transmission Date: 20120403
  Serious: Yes (Hospitalization)
  Sender: FDA-Public Use
  Company Number: None

PATIENT
  Age: 63 Year
  Sex: Male
  Weight: 113.3 kg

DRUGS (13)
  1. LEVOTHYROXINE SODIUM [Concomitant]
  2. HUMIRA [Suspect]
     Indication: PSORIASIS
     Dosage: CHRONIC
  3. VIT D3 [Concomitant]
  4. IRON SULFATETHIAMIN COMPOUND TAB [Concomitant]
  5. AMLODIPINE [Concomitant]
  6. PREDNISONE [Concomitant]
  7. M.V.I. [Concomitant]
  8. METHOTREXATE [Suspect]
     Indication: PSORIASIS
     Dosage: CHRONIC
  9. FLUOXETINE [Concomitant]
  10. NIASPAN [Concomitant]
  11. HUMALOG [Concomitant]
  12. OMEPRAZOLE [Concomitant]
  13. ASPIRIN [Concomitant]

REACTIONS (5)
  - ACUTE LUNG INJURY [None]
  - CEREBROVASCULAR ACCIDENT [None]
  - CARDIAC FAILURE CONGESTIVE [None]
  - GASTROINTESTINAL HAEMORRHAGE [None]
  - RESPIRATORY FAILURE [None]
